FAERS Safety Report 26063105 (Version 1)
Quarter: 2025Q4

REPORT INFORMATION
  Report Type: Spontaneous
  Country: US (occurrence: None)
  Receive Date: 20251118
  Receipt Date: 20251118
  Transmission Date: 20260118
  Serious: Yes (Other)
  Sender: FDA-CTU
  Company Number: None

PATIENT
  Age: 33 Year
  Sex: Female

DRUGS (7)
  1. ZOLOFT [Suspect]
     Active Substance: SERTRALINE HYDROCHLORIDE
     Indication: Anxiety
     Dosage: OTHER QUANTITY : 0.5 TABLET(S);?FREQUENCY : AT BEDTIME;?
     Route: 048
     Dates: start: 20251106, end: 20251110
  2. PREDNISONE [Concomitant]
     Active Substance: PREDNISONE
  3. AUGMENTIN [Concomitant]
     Active Substance: AMOXICILLIN\CLAVULANATE POTASSIUM
  4. EPIPEN [Concomitant]
     Active Substance: EPINEPHRINE
  5. PROPRANOLOL [Concomitant]
     Active Substance: PROPRANOLOL HYDROCHLORIDE
  6. PEPCID [Concomitant]
     Active Substance: FAMOTIDINE
  7. CLARITIN [Concomitant]
     Active Substance: LORATADINE

REACTIONS (5)
  - Sinusitis [None]
  - Drug hypersensitivity [None]
  - Anxiety [None]
  - Oral pain [None]
  - Swelling face [None]

NARRATIVE: CASE EVENT DATE: 20251111
